FAERS Safety Report 6063672-4 (Version None)
Quarter: 2009Q1

REPORT INFORMATION
  Report Type: 
  Country: None (occurrence: None)
  Receive Date: 20090129
  Receipt Date: 20090123
  Transmission Date: 20090719
  Serious: Yes (Other)
  Sender: FDA-Public Use
  Company Number: A0765061A

PATIENT
  Age: 48 Year
  Sex: Female

DRUGS (1)
  1. METHYLCELLULOSE POWDER REGULAR (METHYLCELLULOSE) [Suspect]
     Dosage: ORAL
     Route: 048

REACTIONS (5)
  - ABDOMINAL DISTENSION [None]
  - CHOKING [None]
  - ERUCTATION [None]
  - GASTROOESOPHAGEAL REFLUX DISEASE [None]
  - NAUSEA [None]
